FAERS Safety Report 23442171 (Version 3)
Quarter: 2024Q1

REPORT INFORMATION
  Report Type: Other
  Country: US (occurrence: None)
  Receive Date: 20240125
  Receipt Date: 20240227
  Transmission Date: 20240410
  Serious: Yes (Other)
  Sender: FDA-Public Use
  Company Number: US-ROCHE-3256748

PATIENT
  Age: 55 Year
  Sex: Female
  Weight: 147.55 kg

DRUGS (4)
  1. OCREVUS [Suspect]
     Active Substance: OCRELIZUMAB
     Indication: Relapsing-remitting multiple sclerosis
     Dosage: 600 MG, DOT: 19/AUG/2022, 5/AUG/2022, 22/AUG/2022, 19/JUL/2023
     Route: 042
     Dates: start: 20220805
  2. CARVEDILOL [Concomitant]
     Active Substance: CARVEDILOL
     Indication: Hypertension
     Route: 048
  3. FUROSEMIDE [Concomitant]
     Active Substance: FUROSEMIDE
     Route: 048
     Dates: start: 2017
  4. INSULIN LISPRO [Concomitant]
     Active Substance: INSULIN LISPRO
     Indication: Diabetes mellitus
     Dates: start: 2018

REACTIONS (17)
  - Kidney infection [Recovered/Resolved]
  - Cystitis [Recovered/Resolved]
  - Nephrolithiasis [Recovered/Resolved]
  - B-lymphocyte count increased [Unknown]
  - Impaired driving ability [Unknown]
  - Off label use [Unknown]
  - Therapeutic response shortened [Unknown]
  - Fatigue [Not Recovered/Not Resolved]
  - Gait disturbance [Not Recovered/Not Resolved]
  - Asthenia [Not Recovered/Not Resolved]
  - Tremor [Not Recovered/Not Resolved]
  - Throat irritation [Recovered/Resolved]
  - Weight increased [Not Recovered/Not Resolved]
  - Insomnia [Recovered/Resolved]
  - Respiratory tract infection [Not Recovered/Not Resolved]
  - Off label use [Unknown]
  - Multiple sclerosis [Not Recovered/Not Resolved]

NARRATIVE: CASE EVENT DATE: 20221101
